FAERS Safety Report 9820298 (Version 1)
Quarter: 2014Q1

REPORT INFORMATION
  Report Type: Spontaneous
  Country: US (occurrence: None)
  Receive Date: 20140113
  Receipt Date: 20140113
  Transmission Date: 20141002
  Serious: Yes (Disabling)
  Sender: FDA-Public Use
  Company Number: None

PATIENT
  Age: 50 Year
  Sex: Male
  Weight: 83.92 kg

DRUGS (16)
  1. ZYPREXA [Suspect]
     Indication: BIPOLAR DISORDER
     Dosage: 15 + 5 MG  MORNING MGS. 1 PILL 2CE DAILY CRUSHED W/JUICE
     Dates: start: 201211
  2. ZYPREXA [Suspect]
     Indication: SCHIZOPHRENIA
     Dosage: 15 + 5 MG  MORNING MGS. 1 PILL 2CE DAILY CRUSHED W/JUICE
     Dates: start: 201211
  3. REMITTEDINE [Concomitant]
  4. A-Z CENTRUM [Concomitant]
  5. ZINC [Concomitant]
  6. GINKO BALOBA [Concomitant]
  7. OMEGA 3-6-9 [Concomitant]
  8. SALINIUM [Concomitant]
  9. NIACIN [Concomitant]
  10. HERBS [Concomitant]
  11. TRILAFON [Suspect]
     Dosage: 15 + 5 MG  MORNING MGS. 1 PILL 2CE DAILY CRUSED W/JUICE
     Dates: start: 201211
  12. TRILAFON [Suspect]
     Indication: SCHIZOPHRENIA
     Dosage: 15 + 5 MG  MORNING MGS. 1 PILL 2CE DAILY CRUSED W/JUICE
     Dates: start: 201211
  13. VISTARIL [Suspect]
     Dosage: 15 + 5 MG  MORNING MGS. 1 PILL 2CE DAILY CRUSED W/JUICE
     Dates: start: 201211
  14. VISTARIL [Suspect]
     Dosage: 15 + 5 MG  MORNING MGS. 1 PILL 2CE DAILY CRUSED W/JUICE
     Dates: start: 201211
  15. GEODON [Suspect]
     Dosage: 15 + 5 MG  MORNING MGS. 1 PILL 2CE DAILY CRUSED W/JUICE
     Dates: start: 201211
  16. GEODON [Suspect]
     Dosage: 15 + 5 MG  MORNING MGS. 1 PILL 2CE DAILY CRUSED W/JUICE
     Dates: start: 201211

REACTIONS (8)
  - Asthma [None]
  - Eating disorder [None]
  - Reading disorder [None]
  - Cognitive disorder [None]
  - Dysgraphia [None]
  - Photosensitivity reaction [None]
  - Epistaxis [None]
  - Mydriasis [None]
